FAERS Safety Report 9769348 (Version 2)
Quarter: 2014Q1

REPORT INFORMATION
  Report Type: Spontaneous
  Country: US (occurrence: US)
  Receive Date: 20131218
  Receipt Date: 20140218
  Transmission Date: 20141002
  Serious: Yes (Hospitalization)
  Sender: FDA-Public Use
  Company Number: US-JNJFOC-20131209836

PATIENT
  Age: 61 Year
  Sex: Female

DRUGS (12)
  1. XARELTO [Suspect]
     Indication: THROMBOSIS PROPHYLAXIS
     Route: 048
     Dates: end: 20131114
  2. XARELTO [Suspect]
     Indication: THROMBOSIS PROPHYLAXIS
     Dosage: DAILY
     Route: 048
     Dates: start: 20131112
  3. XARELTO [Suspect]
     Indication: KNEE ARTHROPLASTY
     Route: 048
     Dates: end: 20131114
  4. XARELTO [Suspect]
     Indication: KNEE ARTHROPLASTY
     Dosage: DAILY
     Route: 048
     Dates: start: 20131112
  5. AMITRIPTYLINE [Concomitant]
     Indication: ANXIETY
     Route: 065
  6. ATORVASTATIN [Concomitant]
     Indication: HYPERLIPIDAEMIA
     Route: 065
  7. CHOLECALCIFEROL [Concomitant]
     Dosage: 5000 U
     Route: 065
  8. PROZAC [Concomitant]
     Indication: ANXIETY
     Route: 065
  9. PRILOSEC [Concomitant]
     Indication: GASTROOESOPHAGEAL REFLUX DISEASE
     Route: 065
  10. PREMARIN [Concomitant]
     Route: 065
  11. METFORMIN [Concomitant]
     Indication: DIABETES MELLITUS
     Route: 065
  12. AMLODIPINE/BENAZEPRIL [Concomitant]
     Route: 065

REACTIONS (1)
  - Pulmonary embolism [Recovered/Resolved]
